FAERS Safety Report 4434311-0 (Version None)
Quarter: 2004Q3

REPORT INFORMATION
  Report Type: 
  Country: None (occurrence: None)
  Receive Date: 20040825
  Receipt Date: 20040810
  Transmission Date: 20050211
  Serious: Yes (Hospitalization)
  Sender: FDA-Public Use
  Company Number: CIP95000015

PATIENT
  Age: 58 Year
  Sex: Female

DRUGS (4)
  1. FURADANTIN [Suspect]
     Indication: URINARY TRACT DISORDER
     Dosage: ORAL
     Route: 048
     Dates: start: 19831201, end: 19831226
  2. CONRAY [Suspect]
     Indication: URINARY SYSTEM X-RAY
     Dosage: INJECTION NOS
     Dates: start: 19840105
  3. AMOXIL [Concomitant]
  4. BACTRIM [Concomitant]

REACTIONS (7)
  - ABDOMINAL PAIN [None]
  - BACK PAIN [None]
  - DEHYDRATION [None]
  - DYSPNOEA [None]
  - PURPURA [None]
  - RASH [None]
  - VOMITING [None]
